FAERS Safety Report 9752270 (Version 1)
Quarter: 2013Q4

REPORT INFORMATION
  Report Type: Spontaneous
  Country: US (occurrence: US)
  Receive Date: 20131213
  Receipt Date: 20131213
  Transmission Date: 20140711
  Serious: No
  Sender: FDA-Public Use
  Company Number: US-MYLANLABS-2013S1021021

PATIENT
  Sex: Male
  Weight: 84.37 kg

DRUGS (7)
  1. CLOPIDOGREL TABLETS USP [Suspect]
     Indication: THROMBOSIS PROPHYLAXIS
     Route: 048
     Dates: start: 20121212
  2. ASPIRIN [Concomitant]
     Dosage: 81MG TABLET
  3. ENALAPRIL [Concomitant]
  4. HYDROCHLOROTHIAZIDE [Concomitant]
  5. METOPROLOL TARTRATE [Concomitant]
     Route: 048
  6. NITROGLYCERIN [Concomitant]
  7. PRAVASTATIN [Concomitant]
     Indication: BLOOD CHOLESTEROL

REACTIONS (1)
  - Diarrhoea [Not Recovered/Not Resolved]
